FAERS Safety Report 7398310-1 (Version None)
Quarter: 2011Q2

REPORT INFORMATION
  Report Type: 
  Country: None (occurrence: None)
  Receive Date: 20110406
  Receipt Date: 20110325
  Transmission Date: 20111010
  Serious: Yes (Other)
  Sender: FDA-Public Use
  Company Number: CN-BAYER-2011-024341

PATIENT
  Age: 72 Year
  Sex: Male

DRUGS (13)
  1. AMOXICILLIN + CLAVULANATE POTASSIUM [Concomitant]
     Indication: LUNG INFECTION
  2. MOSAPRIDE [Concomitant]
  3. INSULIN [INSULIN] [Concomitant]
  4. CEFOPERAZONE SODIUM [Concomitant]
  5. UNCODEABLE ^UNCLASSIFIABLE^ [Concomitant]
  6. AMOXICILLIN AND CLAVULANATE POTASSIUM [Concomitant]
  7. LOMEFLOXACIN [Concomitant]
  8. IMIPENEM [Concomitant]
  9. CILASTATIN SODIUM [Concomitant]
  10. CIMETIDINE [Concomitant]
  11. AMBROXOL [Concomitant]
  12. AVELOX [Suspect]
     Indication: PNEUMONIA
     Dosage: 0.4 G, QD
     Route: 041
     Dates: start: 20080531, end: 20080531
  13. SISOMICIN [Concomitant]

REACTIONS (7)
  - CHEST DISCOMFORT [None]
  - ELECTROCARDIOGRAM QT PROLONGED [None]
  - DYSPNOEA [None]
  - SPEECH DISORDER [None]
  - DEPRESSED LEVEL OF CONSCIOUSNESS [None]
  - MENTAL DISORDER [None]
  - GAIT DISTURBANCE [None]
